FAERS Safety Report 7313820-0 (Version None)
Quarter: 2011Q1

REPORT INFORMATION
  Report Type: 
  Country: None (occurrence: None)
  Receive Date: 20110216
  Receipt Date: 20110216
  Transmission Date: 20110831
  Serious: Yes (Other)
  Sender: FDA-Public Use
  Company Number: None

PATIENT
  Age: 68 Year
  Sex: Male
  Weight: 127.0072 kg

DRUGS (2)
  1. PREVACID [Suspect]
     Indication: GASTROOESOPHAGEAL REFLUX DISEASE
     Dosage: 40MG 1 PILL TWICE DAILY PO
     Route: 048
     Dates: start: 20110110, end: 20110215
  2. PREVACID [Suspect]
     Indication: BARRETT'S OESOPHAGUS
     Dosage: 40MG 1 PILL TWICE DAILY PO
     Route: 048
     Dates: start: 20110110, end: 20110215

REACTIONS (3)
  - GASTROOESOPHAGEAL REFLUX DISEASE [None]
  - PRODUCT FORMULATION ISSUE [None]
  - CONDITION AGGRAVATED [None]
